FAERS Safety Report 8908762 (Version 1)
Quarter: 2012Q4

REPORT INFORMATION
  Report Type: 
  Country: US (occurrence: US)
  Receive Date: 20121113
  Receipt Date: 20121113
  Transmission Date: 20130627
  Serious: No
  Sender: FDA-Public Use
  Company Number: US-AMGEN-USASP2012011795

PATIENT
  Age: 73 Year
  Sex: Female

DRUGS (11)
  1. ENBREL [Suspect]
     Indication: PRODUCT USED FOR UNKNOWN INDICATION
     Dosage: 50 mg, qwk
     Route: 058
  2. CENTRUM SILVER                     /01292501/ [Concomitant]
  3. MELOXICAM [Concomitant]
     Dosage: 15 mg, UNK
  4. PREDNISONE [Concomitant]
     Dosage: 1 mg, UNK
  5. LIPITOR [Concomitant]
     Dosage: 10 mg, UNK
  6. OMEPRAZOLE [Concomitant]
     Dosage: 20 mg, UNK
  7. FOLIC ACID [Concomitant]
     Dosage: 1 mg, UNK
  8. TRIAMTEREEN/HYDROCHLOOTTHIAZIDE [Concomitant]
  9. VITAMIN D /00107901/ [Concomitant]
  10. CALCIUM + VITAMIN D [Concomitant]
  11. METHOTREXATE [Concomitant]
     Dosage: 25 mg, UNK

REACTIONS (2)
  - Fall [Unknown]
  - Mouth injury [Unknown]
